FAERS Safety Report 15856868 (Version 1)
Quarter: 2019Q1

REPORT INFORMATION
  Report Type: Spontaneous
  Country: US (occurrence: US)
  Receive Date: 20190122
  Receipt Date: 20190122
  Transmission Date: 20190417
  Serious: Yes (Hospitalization)
  Sender: FDA-Public Use
  Company Number: None

PATIENT
  Sex: Male

DRUGS (3)
  1. TOBI [Suspect]
     Active Substance: TOBRAMYCIN
     Indication: INFECTIVE PULMONARY EXACERBATION OF CYSTIC FIBROSIS
     Dosage: ?          OTHER FREQUENCY:28 D ON + 28 D OFF;OTHER ROUTE:INHALE?
     Route: 055
     Dates: start: 20180602
  2. PULMOZYME [Suspect]
     Active Substance: DORNASE ALFA
     Indication: INFECTIVE PULMONARY EXACERBATION OF CYSTIC FIBROSIS
     Dosage: ?          OTHER ROUTE:NEBULIZER?
     Dates: start: 20140221
  3. NOT REPORTED [Concomitant]

REACTIONS (1)
  - Hospitalisation [None]
